FAERS Safety Report 12559681 (Version 1)
Quarter: 2016Q3

REPORT INFORMATION
  Report Type: Spontaneous
  Country: US (occurrence: US)
  Receive Date: 20160715
  Receipt Date: 20160715
  Transmission Date: 20161109
  Serious: No
  Sender: FDA-Public Use
  Company Number: US-JNJFOC-20160515986

PATIENT
  Age: 65 Year
  Sex: Female
  Weight: 88.45 kg

DRUGS (2)
  1. SUDAFED 12 HOUR [Suspect]
     Active Substance: PSEUDOEPHEDRINE HYDROCHLORIDE
     Indication: MIDDLE EAR EFFUSION
     Route: 048
     Dates: start: 20160510
  2. SUDAFED 12 HOUR [Suspect]
     Active Substance: PSEUDOEPHEDRINE HYDROCHLORIDE
     Route: 048

REACTIONS (5)
  - Tongue oedema [Unknown]
  - Product use issue [Unknown]
  - Choking sensation [Unknown]
  - Burn oesophageal [Unknown]
  - Off label use [Unknown]

NARRATIVE: CASE EVENT DATE: 20160510
